FAERS Safety Report 14838654 (Version 1)
Quarter: 2018Q2

REPORT INFORMATION
  Report Type: Spontaneous
  Country: US (occurrence: US)
  Receive Date: 20180502
  Receipt Date: 20180502
  Transmission Date: 20180711
  Serious: Yes (Hospitalization)
  Sender: FDA-Public Use
  Company Number: US-ASTRAZENECA-2018SE55277

PATIENT
  Age: 76 Year
  Sex: Male
  Weight: 72.6 kg

DRUGS (7)
  1. BAYER ASPIRIN [Concomitant]
     Active Substance: ASPIRIN
  2. DONEPEZIL HYDROCHLORIDE. [Concomitant]
     Active Substance: DONEPEZIL HYDROCHLORIDE
  3. MULTIVITAMIN [Concomitant]
     Active Substance: VITAMINS
  4. VITAMIN D3 [Concomitant]
     Active Substance: CHOLECALCIFEROL
  5. SEROQUEL [Suspect]
     Active Substance: QUETIAPINE FUMARATE
     Dosage: 25 MG, ONE TO TWO TABLETS
     Route: 048
     Dates: start: 20180102
  6. SINEMET [Concomitant]
     Active Substance: CARBIDOPA\LEVODOPA
  7. ALEVE [Concomitant]
     Active Substance: NAPROXEN SODIUM

REACTIONS (2)
  - Adverse drug reaction [Unknown]
  - Hallucination [Not Recovered/Not Resolved]
